FAERS Safety Report 23963227 (Version 1)
Quarter: 2024Q2

REPORT INFORMATION
  Report Type: Spontaneous
  Country: US (occurrence: US)
  Receive Date: 20240611
  Receipt Date: 20240611
  Transmission Date: 20240716
  Serious: No
  Sender: FDA-Public Use
  Company Number: US-RIGEL PHARMACEUTICALS, INC.- 2023FOS000944

PATIENT
  Sex: Female
  Weight: 66.689 kg

DRUGS (2)
  1. TAVALISSE [Suspect]
     Active Substance: FOSTAMATINIB
     Indication: Immune thrombocytopenia
     Dosage: 150 MG, QD, IN THE MORNING
     Route: 048
     Dates: start: 20230816
  2. TAVALISSE [Suspect]
     Active Substance: FOSTAMATINIB
     Dosage: 100 MG, QD, AT NIGHT
     Route: 048
     Dates: start: 20230816

REACTIONS (5)
  - Platelet count decreased [Unknown]
  - Bone pain [Not Recovered/Not Resolved]
  - Back pain [Unknown]
  - Product prescribing issue [Unknown]
  - Fatigue [Not Recovered/Not Resolved]

NARRATIVE: CASE EVENT DATE: 20230101
